FAERS Safety Report 25065283 (Version 2)
Quarter: 2025Q1

REPORT INFORMATION
  Report Type: Report from Study
  Country: CA (occurrence: CA)
  Receive Date: 20250311
  Receipt Date: 20250317
  Transmission Date: 20250409
  Serious: Yes (Other)
  Sender: HLS THERAPEUTICS
  Company Number: CA-HLS-202500639

PATIENT
  Age: 67 Year
  Sex: Female

DRUGS (2)
  1. CLOZARIL [Suspect]
     Active Substance: CLOZAPINE
     Indication: Product used for unknown indication
     Route: 048
     Dates: start: 20250211
  2. CLOZARIL [Suspect]
     Active Substance: CLOZAPINE
     Indication: Product used for unknown indication
     Route: 048

REACTIONS (10)
  - Neutrophil count increased [Unknown]
  - C-reactive protein increased [Not Recovered/Not Resolved]
  - Left atrial enlargement [Unknown]
  - Fall [Unknown]
  - Monocyte count increased [Unknown]
  - Blood pressure orthostatic decreased [Unknown]
  - Oxygen saturation decreased [Unknown]
  - Respiratory rate increased [Recovered/Resolved]
  - Troponin T increased [Not Recovered/Not Resolved]
  - White blood cell count increased [Unknown]

NARRATIVE: CASE EVENT DATE: 20250214
